FAERS Safety Report 11983930 (Version 1)
Quarter: 2016Q1

REPORT INFORMATION
  Report Type: Report from Study
  Country: US (occurrence: US)
  Receive Date: 20160201
  Receipt Date: 20160201
  Transmission Date: 20160526
  Serious: Yes (Death, Other)
  Sender: FDA-Public Use
  Company Number: US-ROCHE-1700881

PATIENT

DRUGS (4)
  1. GANCICLOVIR. [Suspect]
     Active Substance: GANCICLOVIR
     Indication: CYTOMEGALOVIRUS TEST POSITIVE
     Route: 065
  2. GANCICLOVIR. [Suspect]
     Active Substance: GANCICLOVIR
     Route: 065
  3. GANCICLOVIR. [Suspect]
     Active Substance: GANCICLOVIR
     Dosage: UNTIL DAYS AFTER CESSATION OF ANTIGENEMIA
     Route: 065
  4. GANCICLOVIR. [Suspect]
     Active Substance: GANCICLOVIR
     Indication: CYTOMEGALOVIRUS TEST POSITIVE
     Route: 065

REACTIONS (10)
  - Coma [Unknown]
  - Seizure [Unknown]
  - Fungal infection [Fatal]
  - Varicella zoster virus infection [Unknown]
  - Neutropenia [Unknown]
  - Ataxia [Unknown]
  - Bacteraemia [Fatal]
  - Aspergillus infection [Fatal]
  - Herpes simplex [Unknown]
  - Bacterial infection [Unknown]
